FAERS Safety Report 7516533-5 (Version None)
Quarter: 2011Q2

REPORT INFORMATION
  Report Type: 
  Country: None (occurrence: None)
  Receive Date: 20110601
  Receipt Date: 20110524
  Transmission Date: 20111010
  Serious: Yes (Hospitalization, Other)
  Sender: FDA-Public Use
  Company Number: B0712871A

PATIENT
  Sex: Male

DRUGS (8)
  1. VITAMEDIN [Concomitant]
     Indication: VITAMIN SUPPLEMENTATION
     Route: 042
     Dates: start: 20110330
  2. MINERALIN [Concomitant]
     Indication: MEDICAL DIET
     Route: 042
     Dates: start: 20110330
  3. BICARBONATE [Concomitant]
     Indication: FLUID REPLACEMENT
     Dosage: 500ML PER DAY
     Route: 042
     Dates: start: 20110330
  4. MEROPENEM [Concomitant]
     Indication: MALIGNANT HEPATOBILIARY NEOPLASM
     Dosage: 1G PER DAY
     Route: 042
     Dates: start: 20110410, end: 20110412
  5. ARIXTRA [Suspect]
     Indication: THROMBOSIS PROPHYLAXIS
     Dosage: 2.5MG PER DAY
     Route: 058
     Dates: start: 20110330, end: 20110412
  6. TPN ELECTROLYTES IN PLASTIC CONTAINER [Concomitant]
     Indication: FLUID REPLACEMENT
     Dosage: 1000ML PER DAY
     Route: 042
     Dates: start: 20110330
  7. NEO-MINOPHAGEN C [Concomitant]
     Indication: HEPATIC FUNCTION ABNORMAL
     Dosage: 40ML PER DAY
     Route: 042
     Dates: start: 20110330
  8. INTRALIPID 10% [Concomitant]
     Indication: MEDICAL DIET
     Dosage: 100ML PER DAY
     Route: 042
     Dates: start: 20110330

REACTIONS (1)
  - RENAL FAILURE ACUTE [None]
